FAERS Safety Report 10197831 (Version 1)
Quarter: 2014Q2

REPORT INFORMATION
  Report Type: Spontaneous
  Country: GB (occurrence: GB)
  Receive Date: 20140527
  Receipt Date: 20140527
  Transmission Date: 20141212
  Serious: Yes (Other)
  Sender: FDA-Public Use
  Company Number: GB-WATSON-2014-10838

PATIENT
  Age: 47 Year
  Sex: Male

DRUGS (4)
  1. OFLOXACINE (UNKNOWN) [Suspect]
     Indication: CHLAMYDIAL INFECTION
     Dosage: 400 MG, BID
     Route: 065
  2. CLINDAMYCIN (UNKNOWN) [Suspect]
     Indication: CHLAMYDIAL INFECTION
     Dosage: 300 MG, DAILY
     Route: 065
  3. RIFAMPICIN [Concomitant]
     Indication: PRODUCT USED FOR UNKNOWN INDICATION
     Dosage: 300 MG, BID
     Route: 065
  4. PREDNISOLONE [Concomitant]
     Indication: PRODUCT USED FOR UNKNOWN INDICATION
     Dosage: 40 MG, DAILY
     Route: 065

REACTIONS (3)
  - Chlamydial infection [Not Recovered/Not Resolved]
  - Pathogen resistance [Unknown]
  - Treatment failure [Unknown]
